FAERS Safety Report 23757523 (Version 2)
Quarter: 2024Q2

REPORT INFORMATION
  Report Type: Spontaneous
  Country: US (occurrence: US)
  Receive Date: 20240418
  Receipt Date: 20240528
  Transmission Date: 20240716
  Serious: Yes (Hospitalization)
  Sender: FDA-Public Use
  Company Number: US-PFIZER INC-202400087389

PATIENT
  Age: 86 Year
  Sex: Male
  Weight: 65.76 kg

DRUGS (20)
  1. VYNDAMAX [Suspect]
     Active Substance: TAFAMIDIS
     Indication: Cardiac amyloidosis
     Dosage: 61MG CAPSULE ONE A DAY
     Route: 048
  2. VYNDAMAX [Suspect]
     Active Substance: TAFAMIDIS
     Indication: Acquired ATTR amyloidosis
  3. WARFARIN [Suspect]
     Active Substance: WARFARIN
     Indication: Anticoagulant therapy
     Dosage: 5 MG 6 DAYS A WEEK
     Route: 048
  4. WARFARIN [Suspect]
     Active Substance: WARFARIN
     Dosage: 7.5MG ON FRIDAY
     Route: 048
  5. WARFARIN [Suspect]
     Active Substance: WARFARIN
     Dosage: 5 MG, 1X A DAY 5 DAYS
  6. WARFARIN [Suspect]
     Active Substance: WARFARIN
     Dosage: 7.5 MG, 1X A DAY 2 DAYS
  7. CARBIDOPA\LEVODOPA [Concomitant]
     Active Substance: CARBIDOPA\LEVODOPA
     Indication: Parkinsonism
     Dosage: 50/200MG TABLET THREE TIMES A DAY
     Route: 048
  8. CARBIDOPA\LEVODOPA [Concomitant]
     Active Substance: CARBIDOPA\LEVODOPA
     Indication: Tremor
  9. CLONAZEPAM [Concomitant]
     Active Substance: CLONAZEPAM
     Indication: Sleep terror
     Dosage: 0.5MG, WHICH IS HALF A TABLET, ONCE EVERY EVENING
     Route: 048
  10. DONEPEZIL [Concomitant]
     Active Substance: DONEPEZIL\DONEPEZIL HYDROCHLORIDE
     Indication: Memory impairment
     Dosage: 10MG TABLET ONCE IN THE EVENING
     Route: 048
  11. ESOMEPRAZOLE [Concomitant]
     Active Substance: ESOMEPRAZOLE
     Indication: Gastrooesophageal reflux disease
     Dosage: 40MG CAPSULE ONCE IN THE MORNING
     Route: 048
  12. ESOMEPRAZOLE [Concomitant]
     Active Substance: ESOMEPRAZOLE
     Indication: Gastrooesophageal reflux disease
  13. LEVOTHYROXINE [Concomitant]
     Active Substance: LEVOTHYROXINE\LEVOTHYROXINE SODIUM
     Indication: Thyroid disorder
     Dosage: 88MCG TABLET ONE IN THE MORNING
     Route: 048
  14. MIDODRINE [Concomitant]
     Active Substance: MIDODRINE
     Indication: Blood pressure decreased
     Dosage: 10MG TABLET THREE TIMES A DAY (MORNING, AFTERNOON, EVENING)
     Route: 048
  15. MIDODRINE [Concomitant]
     Active Substance: MIDODRINE
     Indication: Hypotension
  16. POTASSIUM CHLORIDE [Concomitant]
     Active Substance: POTASSIUM CHLORIDE
     Indication: Cardiac disorder
     Dosage: 10MEQ TABLET ONCE IN THE MORNING
     Route: 048
  17. PYRIDOSTIGMINE [Concomitant]
     Active Substance: PYRIDOSTIGMINE
     Indication: Blood pressure abnormal
     Dosage: 120 MG, 3X/DAY
  18. PYRIDOSTIGMINE [Concomitant]
     Active Substance: PYRIDOSTIGMINE
     Dosage: 60MG TABLET , 2 IN THE MORNING, 1 AND HALF A TABLET IN THE AFTERNOON AND EVENING
     Route: 048
  19. VITAMIN D3 [Concomitant]
     Active Substance: CHOLECALCIFEROL
     Indication: Vitamin D decreased
     Dosage: 125MCG CAPSULE ONCE THE MORNING
     Route: 048
  20. MINERALS\VITAMINS [Concomitant]
     Active Substance: MINERALS\VITAMINS
     Dosage: UNK, 1X/DAY

REACTIONS (3)
  - Cerebrovascular accident [Not Recovered/Not Resolved]
  - International normalised ratio decreased [Unknown]
  - Product dose omission issue [Unknown]

NARRATIVE: CASE EVENT DATE: 20240401
